FAERS Safety Report 4325248-6 (Version None)
Quarter: 2004Q1

REPORT INFORMATION
  Report Type: 
  Country: None (occurrence: None)
  Receive Date: 20040324
  Receipt Date: 20040211
  Transmission Date: 20041129
  Serious: Yes (Hospitalization)
  Sender: FDA-Public Use
  Company Number: 430004X04ITA

PATIENT
  Age: 53 Year
  Sex: Male

DRUGS (5)
  1. NOVANTRONE [Suspect]
     Indication: ACUTE PROMYELOCYTIC LEUKAEMIA
  2. TRETINOIN [Suspect]
     Indication: ACUTE PROMYELOCYTIC LEUKAEMIA
     Dosage: 90 MG, 1 IN 1 DAYS
     Dates: start: 20031220, end: 20040103
  3. ANTINEOPLASTIC AGENTS [Suspect]
  4. ETOPOSIDE [Suspect]
     Indication: ACUTE PROMYELOCYTIC LEUKAEMIA
  5. BACTRIM [Concomitant]

REACTIONS (1)
  - PANCYTOPENIA [None]
